FAERS Safety Report 8216056-4 (Version None)
Quarter: 2012Q1

REPORT INFORMATION
  Report Type: 
  Country: None (occurrence: None)
  Receive Date: 20120316
  Receipt Date: 20120308
  Transmission Date: 20120608
  Serious: Yes (Other)
  Sender: FDA-Public Use
  Company Number: US-ABBOTT-12P-163-0913249-00

PATIENT
  Age: 34 Year
  Sex: Female

DRUGS (1)
  1. HUMIRA [Suspect]
     Indication: CROHN'S DISEASE

REACTIONS (6)
  - SINUS HEADACHE [None]
  - NASAL CONGESTION [None]
  - POLYP [None]
  - CHRONIC SINUSITIS [None]
  - PAIN [None]
  - NASAL DISCHARGE DISCOLOURATION [None]
